FAERS Safety Report 4491314-8 (Version None)
Quarter: 2004Q3

REPORT INFORMATION
  Report Type: 
  Country: None (occurrence: None)
  Receive Date: 20040921
  Receipt Date: 20040316
  Transmission Date: 20050211
  Serious: Yes (Other)
  Sender: FDA-Public Use
  Company Number: 163-20785-04030357 (0)

PATIENT
  Age: 36 Year
  Sex: Male
  Weight: 104.5 kg

DRUGS (6)
  1. THALOMID [Suspect]
     Indication: CHRONIC LYMPHOCYTIC LEUKAEMIA
     Dosage: 300 MG, DAILY, ORAL
     Route: 048
     Dates: end: 20040321
  2. FLUDARABINE PHOSPHATE [Suspect]
     Indication: CHRONIC LYMPHOCYTIC LEUKAEMIA
     Dosage: 25 MG/M2, EVERY 28 DAYS,INTRAVENOUS
     Route: 042
  3. COLACE (DOCUSATE SODIUM) (CAPSULES) [Concomitant]
  4. SENOKOT (SENNA FRUIT) (TABLETS) [Concomitant]
  5. COUMADIN [Concomitant]
  6. COMPAZINE [Concomitant]

REACTIONS (2)
  - FEBRILE NEUTROPENIA [None]
  - LIVER FUNCTION TEST ABNORMAL [None]
